FAERS Safety Report 4334276-6 (Version None)
Quarter: 2004Q1

REPORT INFORMATION
  Report Type: 
  Country: None (occurrence: None)
  Receive Date: 20040329
  Receipt Date: 20040219
  Transmission Date: 20041129
  Serious: No
  Sender: FDA-Public Use
  Company Number: 03P-163-0235321-00

PATIENT
  Age: 56 Year
  Sex: Female
  Weight: 99.7913 kg

DRUGS (13)
  1. HUMIRA [Suspect]
     Indication: RHEUMATOID ARTHRITIS
     Dosage: 40 MG, 1 IN 2 WK, SUBCUTANEOUS
     Route: 058
     Dates: start: 20030901
  2. PREDNISONE [Concomitant]
  3. METHOTREXATE SODIUM [Concomitant]
  4. FOLIC ACID [Concomitant]
  5. CALCIUM [Concomitant]
  6. FISH OIL [Concomitant]
  7. GABAPENTIN [Concomitant]
  8. LANSOPRAZOLE [Concomitant]
  9. MELOXICAM [Concomitant]
  10. UBIDECARENONE [Concomitant]
  11. PANTOPRAZOLE [Concomitant]
  12. GLUCOSAMINE [Concomitant]
  13. ASPIRIN [Concomitant]

REACTIONS (2)
  - DRUG INEFFECTIVE [None]
  - INJECTION SITE BURNING [None]
